FAERS Safety Report 8242793-1 (Version None)
Quarter: 2012Q1

REPORT INFORMATION
  Report Type: 
  Country: None (occurrence: None)
  Receive Date: 20120329
  Receipt Date: 20120319
  Transmission Date: 20120608
  Serious: Yes (Death)
  Sender: FDA-Public Use
  Company Number: JP-AMGEN-JPNSP2011068260

PATIENT
  Age: 60 Year
  Sex: Male
  Weight: 54 kg

DRUGS (20)
  1. CINACALCET HYDROCHLORIDE [Suspect]
     Dosage: 50 MG, QD
     Route: 048
     Dates: start: 20110420, end: 20110811
  2. PROMACTA [Concomitant]
     Indication: GASTRIC ULCER
     Dosage: 150 MG, BID
     Route: 048
     Dates: start: 20110603, end: 20111211
  3. CALTAN OD [Concomitant]
     Dosage: UNK
     Route: 048
     Dates: end: 20110823
  4. ATELEC [Concomitant]
     Indication: HYPERTENSION
     Dosage: 20 MG, BID
     Route: 048
     Dates: start: 20111109, end: 20111211
  5. CINACALCET HYDROCHLORIDE [Suspect]
     Indication: HYPERPARATHYROIDISM SECONDARY
     Dosage: 100 MG, QD
     Route: 048
     Dates: start: 20110420, end: 20111211
  6. CALTAN OD [Concomitant]
     Route: 048
     Dates: start: 20110824, end: 20111211
  7. ATELEC [Concomitant]
     Dosage: UNK
     Route: 048
     Dates: start: 20111109, end: 20111122
  8. NIZATIDINE [Concomitant]
     Indication: GASTRIC ULCER
     Dosage: 75 MG, QD
     Route: 048
     Dates: start: 20111207, end: 20111211
  9. FOSRENOL [Concomitant]
     Indication: HYPERPHOSPHATAEMIA
     Dosage: 250 MG, TID
     Route: 048
     Dates: start: 20110420, end: 20111211
  10. PURSENNID [Concomitant]
     Indication: CONSTIPATION
     Dosage: 24 MG, QD
     Route: 048
     Dates: start: 20110420, end: 20111211
  11. CINACALCET HYDROCHLORIDE [Suspect]
     Dosage: 100 MG, QD
     Route: 048
     Dates: start: 20111021, end: 20111211
  12. OLMESARTAN MEDOXOMIL [Concomitant]
     Indication: HYPERTENSION
     Dosage: 20 MG, QD
     Route: 048
     Dates: start: 20110420, end: 20111211
  13. BISOPROLOL FUMARATE [Concomitant]
     Indication: HYPERTENSION
     Dosage: 2.5 MG, QD
     Route: 048
     Dates: start: 20110420, end: 20111211
  14. CALTAN OD [Concomitant]
     Indication: HYPERPHOSPHATAEMIA
     Dosage: 500 MG, TID
     Route: 048
     Dates: start: 20110810, end: 20111211
  15. ATELEC [Concomitant]
     Dosage: UNK
     Route: 048
     Dates: start: 20111123, end: 20111211
  16. CINACALCET HYDROCHLORIDE [Suspect]
     Dosage: 75 MG, QD
     Route: 048
     Dates: start: 20110812, end: 20111020
  17. ZOLPIDEM [Concomitant]
     Indication: INSOMNIA
     Dosage: 5 MG, QD
     Route: 048
     Dates: start: 20110420, end: 20111211
  18. CALTAN OD [Concomitant]
     Dosage: UNK
     Route: 048
     Dates: start: 20110810
  19. AMLODIPINE [Concomitant]
     Indication: HYPERTENSION
     Dosage: 2.5 MG, QD
     Route: 048
     Dates: end: 20111108
  20. RABEPRAZOLE SODIUM [Concomitant]
     Indication: GASTRIC ULCER
     Dosage: 10 MG, QD
     Dates: end: 20111206

REACTIONS (3)
  - VENTRICULAR FLUTTER [None]
  - HYPOCALCAEMIA [None]
  - ELECTROCARDIOGRAM QT PROLONGED [None]
